FAERS Safety Report 5466974-5 (Version None)
Quarter: 2007Q3

REPORT INFORMATION
  Report Type: 
  Country: None (occurrence: None)
  Receive Date: 20070921
  Receipt Date: 20070921
  Transmission Date: 20080115
  Serious: No
  Sender: FDA-Public Use
  Company Number: None

PATIENT
  Sex: Female
  Weight: 61.2 kg

DRUGS (2)
  1. ZYPREXA [Suspect]
     Indication: RASH
     Dates: start: 20070918, end: 20070919
  2. ZYRTEC [Suspect]

REACTIONS (3)
  - ABDOMINAL PAIN [None]
  - DRUG PRESCRIBING ERROR [None]
  - MUSCLE SPASMS [None]
